FAERS Safety Report 14433918 (Version 4)
Quarter: 2021Q4

REPORT INFORMATION
  Report Type: Report from Study
  Country: FR (occurrence: FR)
  Receive Date: 20180124
  Receipt Date: 20211022
  Transmission Date: 20220303
  Serious: Yes (Hospitalization, Other)
  Sender: FDA-Public Use
  Company Number: FR-SHIRE-FR201736501

PATIENT
  Age: 22 Month
  Sex: Male

DRUGS (7)
  1. METHOTREXATE [Suspect]
     Active Substance: METHOTREXATE
     Indication: Acute lymphocytic leukaemia
     Dosage: 8 MILLIGRAM
     Route: 037
     Dates: start: 20171129, end: 20171129
  2. HYDROCORTISONE [Suspect]
     Active Substance: HYDROCORTISONE
     Indication: Acute lymphocytic leukaemia
     Dosage: 10 MILLIGRAM
     Route: 037
     Dates: start: 20171129, end: 20171129
  3. VINCRISTINE [Suspect]
     Active Substance: VINCRISTINE
     Indication: Acute lymphocytic leukaemia
     Dosage: 0.7 MILLIGRAM
     Route: 042
     Dates: start: 20171211, end: 20171222
  4. PEGASPARGASE [Suspect]
     Active Substance: PEGASPARGASE
     Indication: Acute lymphocytic leukaemia
     Dosage: 1300 INTERNATIONAL UNIT
     Route: 042
     Dates: start: 20171211, end: 20171211
  5. MERCAPTOPURINE [Suspect]
     Active Substance: MERCAPTOPURINE
     Indication: Acute lymphocytic leukaemia
     Dosage: 31 MILLIGRAM
     Route: 048
     Dates: start: 20171127, end: 20171210
  6. CYCLOPHOSPHAMIDE [Suspect]
     Active Substance: CYCLOPHOSPHAMIDE
     Indication: Acute lymphocytic leukaemia
     Dosage: 520 MILLIGRAM
     Route: 042
     Dates: start: 20171127, end: 20171127
  7. CYTARABINE [Suspect]
     Active Substance: CYTARABINE
     Indication: Acute lymphocytic leukaemia
     Dosage: 20 MILLIGRAM
     Route: 037
     Dates: start: 20171129, end: 20171129

REACTIONS (3)
  - Cough [Recovering/Resolving]
  - Febrile bone marrow aplasia [Recovered/Resolved]
  - Bronchitis [Recovered/Resolved]

NARRATIVE: CASE EVENT DATE: 20171226
